FAERS Safety Report 16798038 (Version 1)
Quarter: 2019Q3

REPORT INFORMATION
  Report Type: Spontaneous
  Country: US (occurrence: US)
  Receive Date: 20190912
  Receipt Date: 20190912
  Transmission Date: 20191005
  Serious: Yes (Other)
  Sender: FDA-Public Use
  Company Number: US-LUPIN PHARMACEUTICALS INC.-2019-05820

PATIENT
  Age: 16 Year
  Sex: Female

DRUGS (15)
  1. OXCARBAZEPINE. [Suspect]
     Active Substance: OXCARBAZEPINE
     Indication: DYSKINESIA
     Dosage: UNK
     Route: 065
  2. OXCARBAZEPINE. [Suspect]
     Active Substance: OXCARBAZEPINE
     Dosage: 75 MILLIGRAM, QD, (ON DAY 15-18) (SOLUTION CONCENTRATION 60MG/ML)
     Route: 065
  3. OXCARBAZEPINE. [Suspect]
     Active Substance: OXCARBAZEPINE
     Dosage: 19.2 MILLIGRAM, QD (ON DAY 11-12) (SOLUTION CONCENTRATION 6 MG/ML)
     Route: 065
  4. OXCARBAZEPINE. [Suspect]
     Active Substance: OXCARBAZEPINE
     Dosage: 300 MILLIGRAM, BID, (ON DAY 25 ONWARD) (SOLUTION CONCENTRATION 60MG/ML)
     Route: 065
  5. OXCARBAZEPINE. [Suspect]
     Active Substance: OXCARBAZEPINE
     Dosage: 450 MILLIGRAM, BID (MAINTENANCE DOSE)
     Route: 065
  6. OXCARBAZEPINE. [Suspect]
     Active Substance: OXCARBAZEPINE
     Dosage: 1.2 MILLIGRAM DAILY (ON DAY 3-4) (SOLUTION CONCENTRATION 0.6 MG/ML)
     Route: 065
  7. OXCARBAZEPINE. [Suspect]
     Active Substance: OXCARBAZEPINE
     Dosage: 2.4 MILLIGRAM, QD (ON DAY 5-6)(SOLUTION CONCENTRATION 0.6 MG/ML)
     Route: 065
  8. OXCARBAZEPINE. [Suspect]
     Active Substance: OXCARBAZEPINE
     Dosage: 0.06 MILLIGRAM (SOLUTION CONCENTRATION 0.6 MG/ML)
     Route: 065
  9. OXCARBAZEPINE. [Suspect]
     Active Substance: OXCARBAZEPINE
     Dosage: 38.4 MILLIGRAM, QD (ON DAY 13-14) (SOLUTION CONCENTRATION 6 MG/ML)
     Route: 065
  10. OXCARBAZEPINE. [Suspect]
     Active Substance: OXCARBAZEPINE
     Dosage: 9.6 MILLIGRAM, QD (ON DAY 9-10) (SOLUTION CONCENTRATION 6 MG/ML)
     Route: 065
  11. OXCARBAZEPINE. [Suspect]
     Active Substance: OXCARBAZEPINE
     Dosage: 150 MILLIGRAM, BID, (ON DAY 21-24) (SOLUTION CONCENTRATION 60MG/ML)
     Route: 065
  12. LAMOTRIGINE. [Suspect]
     Active Substance: LAMOTRIGINE
     Indication: DYSKINESIA
     Dosage: UNK
     Route: 065
  13. OXCARBAZEPINE. [Suspect]
     Active Substance: OXCARBAZEPINE
     Dosage: 0.6 MILLIGRAM, QD (ON DAY 1-2) (SOLUTION CONCENTRATION 0.6 MG/ML)
     Route: 065
  14. OXCARBAZEPINE. [Suspect]
     Active Substance: OXCARBAZEPINE
     Dosage: 4.8 MILLIGRAM, QD (ON DAY 7-8)(SOLUTION CONCENTRATION 6 MG/ML)
     Route: 065
  15. OXCARBAZEPINE. [Suspect]
     Active Substance: OXCARBAZEPINE
     Dosage: 75 MILLIGRAM, BID (ON DAY 19-20) (SOLUTION CONCENTRATION 60MG/ML)
     Route: 065

REACTIONS (2)
  - Type IV hypersensitivity reaction [Recovered/Resolved]
  - Rash papular [Recovered/Resolved]
